FAERS Safety Report 20647488 (Version 1)
Quarter: 2022Q1

REPORT INFORMATION
  Report Type: Spontaneous
  Country: US (occurrence: US)
  Receive Date: 20220329
  Receipt Date: 20220329
  Transmission Date: 20220424
  Serious: Yes (Other)
  Sender: FDA-Public Use
  Company Number: US-JNJFOC-20220355926

PATIENT
  Age: 8 Decade
  Sex: Male

DRUGS (3)
  1. XARELTO [Suspect]
     Active Substance: RIVAROXABAN
     Indication: Cerebrovascular accident prophylaxis
     Route: 048
  2. XARELTO [Suspect]
     Active Substance: RIVAROXABAN
     Indication: Atrial fibrillation
  3. DOFETILIDE [Suspect]
     Active Substance: DOFETILIDE
     Indication: Product used for unknown indication
     Route: 065

REACTIONS (1)
  - Pericardial haemorrhage [Unknown]

NARRATIVE: CASE EVENT DATE: 20210101
